FAERS Safety Report 20369647 (Version 1)
Quarter: 2022Q1

REPORT INFORMATION
  Report Type: Spontaneous
  Country: CN (occurrence: CN)
  Receive Date: 20220124
  Receipt Date: 20220124
  Transmission Date: 20220424
  Serious: Yes (Death)
  Sender: FDA-Public Use
  Company Number: CN-PFIZER INC-202200110950

PATIENT
  Age: 61 Year
  Sex: Male

DRUGS (11)
  1. CEFOPERAZONE SODIUM\SULBACTAM SODIUM [Suspect]
     Active Substance: CEFOPERAZONE SODIUM\SULBACTAM SODIUM
     Dosage: UNK
  2. METHYLPREDNISOLONE [Suspect]
     Active Substance: METHYLPREDNISOLONE
     Indication: Antiinflammatory therapy
     Dosage: UNK
  3. DOXOFYLLINE [Suspect]
     Active Substance: DOXOFYLLINE
     Indication: Asthma
     Dosage: UNK
  4. ALBUTEROL [Suspect]
     Active Substance: ALBUTEROL
     Indication: Asthma
     Dosage: UNK
  5. IPRATROPIUM BROMIDE [Suspect]
     Active Substance: IPRATROPIUM BROMIDE
     Indication: Asthma
     Dosage: UNK
  6. DOPAMINE [Suspect]
     Active Substance: DOPAMINE HYDROCHLORIDE
     Indication: Hypotension
     Dosage: UNK
  7. ITRACONAZOLE [Suspect]
     Active Substance: ITRACONAZOLE
     Indication: Asthma
     Dosage: UNK
  8. THEOPHYLLINE [Suspect]
     Active Substance: THEOPHYLLINE
     Indication: Asthma
     Dosage: UNK
  9. SULFAMETHOXAZOLE\TRIMETHOPRIM [Concomitant]
     Active Substance: SULFAMETHOXAZOLE\TRIMETHOPRIM
     Dosage: 3 G, 2X/DAY
     Route: 048
  10. AMIKACIN [Concomitant]
     Active Substance: AMIKACIN
     Dosage: 0.4 G, 1X/DAY
     Route: 042
  11. MANNITOL [Concomitant]
     Active Substance: MANNITOL
     Indication: Dehydration

REACTIONS (1)
  - Drug ineffective [Fatal]
